FAERS Safety Report 7406490-4 (Version None)
Quarter: 2011Q2

REPORT INFORMATION
  Report Type: 
  Country: None (occurrence: None)
  Receive Date: 20110406
  Receipt Date: 20110406
  Transmission Date: 20111010
  Serious: Yes (Other)
  Sender: FDA-Public Use
  Company Number: None

PATIENT
  Sex: Male
  Weight: 81.6475 kg

DRUGS (2)
  1. CARAC [Suspect]
     Indication: PHOTODERMATOSIS
     Dosage: 1 TEASPOON ONCE DAILY TOP
     Route: 061
     Dates: start: 20110131, end: 20110221
  2. DORZOLAMIDE/TIMILOL EYE DROPS [Concomitant]

REACTIONS (1)
  - PRURITUS [None]
